FAERS Safety Report 7382862-1 (Version None)
Quarter: 2011Q1

REPORT INFORMATION
  Report Type: 
  Country: None (occurrence: None)
  Receive Date: 20110330
  Receipt Date: 20110317
  Transmission Date: 20110831
  Serious: Yes (Hospitalization)
  Sender: FDA-Public Use
  Company Number: AU-CELGENEUS-008-C5013-11031932

PATIENT
  Sex: Male
  Weight: 69 kg

DRUGS (11)
  1. PREDNISONE [Suspect]
     Indication: PROSTATE CANCER
     Dosage: 10 MILLIGRAM
     Route: 065
     Dates: start: 20101122
  2. PREDNISONE [Suspect]
     Indication: ADRENAL SUPPRESSION
  3. COLOXYL + SENNA [Concomitant]
     Indication: CONSTIPATION
     Route: 048
     Dates: start: 20101221
  4. CC-5013\PLACEBO [Suspect]
     Indication: PROSTATE CANCER
     Dosage: 25 MILLIGRAM
     Route: 048
     Dates: start: 20101122
  5. PARACETAMOL [Concomitant]
     Indication: BACK PAIN
     Route: 048
     Dates: start: 20100601
  6. DOCETAXEL [Suspect]
     Indication: PROSTATE CANCER
     Dosage: 132 MILLIGRAM
     Route: 065
     Dates: start: 20101122
  7. ORDINE [Concomitant]
     Indication: BACK PAIN
     Dosage: 10-15MG
     Route: 048
     Dates: start: 20100801
  8. METOCLOPRAMIDE [Concomitant]
     Indication: ANTIEMETIC SUPPORTIVE CARE
     Dosage: 10 MILLIGRAM
     Route: 051
     Dates: start: 20110210, end: 20110210
  9. KAPANOL [Concomitant]
     Indication: BACK PAIN
     Route: 048
     Dates: start: 20100801
  10. CALCIUM WITH VITAMIN D [Concomitant]
     Indication: HYPOCALCAEMIA
     Dosage: 6 TABLET
     Route: 048
     Dates: start: 20110205
  11. CLEXANE [Concomitant]
     Dosage: 40 MILLIGRAM
     Route: 058
     Dates: start: 20110210, end: 20110220

REACTIONS (2)
  - HYPONATRAEMIA [None]
  - BACK PAIN [None]
